FAERS Safety Report 16692761 (Version 5)
Quarter: 2019Q3

REPORT INFORMATION
  Report Type: Spontaneous
  Country: US (occurrence: US)
  Receive Date: 20190812
  Receipt Date: 20190919
  Transmission Date: 20191004
  Serious: Yes (Other)
  Sender: FDA-Public Use
  Company Number: US-PFIZER INC-2019340039

PATIENT
  Age: 82 Year
  Sex: Female
  Weight: 78 kg

DRUGS (4)
  1. LYRICA [Suspect]
     Active Substance: PREGABALIN
     Dosage: 25 MG, 5X/DAY
  2. LYRICA [Suspect]
     Active Substance: PREGABALIN
     Dosage: 100 MG, DAILY
  3. LYRICA [Suspect]
     Active Substance: PREGABALIN
     Dosage: 25 MG, 3X/DAY
  4. LYRICA [Suspect]
     Active Substance: PREGABALIN
     Dosage: 300 MG, 2X/DAY

REACTIONS (13)
  - Cerebral disorder [Unknown]
  - Feeling abnormal [Unknown]
  - Loss of control of legs [Unknown]
  - Back pain [Unknown]
  - Tremor [Unknown]
  - Drug intolerance [Unknown]
  - Pain in extremity [Unknown]
  - Neuropathy peripheral [Unknown]
  - Drug ineffective [Unknown]
  - Product prescribing error [Unknown]
  - Compression fracture [Unknown]
  - Mutism [Unknown]
  - Pharyngeal disorder [Unknown]
